FAERS Safety Report 26005672 (Version 1)
Quarter: 2025Q4

REPORT INFORMATION
  Report Type: Other
  Country: AU (occurrence: AU)
  Receive Date: 20251106
  Receipt Date: 20251106
  Transmission Date: 20260117
  Serious: Yes (Other)
  Sender: ZYDUS PHARM
  Company Number: AU-ZYDUS PHARMACEUTICALS UK LTD-AU-ZYDUS-130196

PATIENT

DRUGS (3)
  1. MESALAMINE [Suspect]
     Active Substance: MESALAMINE
     Indication: Product used for unknown indication
     Dosage: UNK
     Route: 065
  2. AZATHIOPRINE [Concomitant]
     Active Substance: AZATHIOPRINE
     Indication: Product used for unknown indication
     Dosage: UNK
     Route: 065
  3. URSODIOL [Concomitant]
     Active Substance: URSODIOL
     Indication: Product used for unknown indication
     Dosage: UNK
     Route: 065

REACTIONS (6)
  - Lower respiratory tract infection [Unknown]
  - Chest X-ray abnormal [Unknown]
  - Inflammatory marker increased [Unknown]
  - Abdominal pain [Unknown]
  - Eosinophilia [Unknown]
  - Pyrexia [Unknown]
